FAERS Safety Report 23357748 (Version 1)
Quarter: 2024Q1

REPORT INFORMATION
  Report Type: Spontaneous
  Country: US (occurrence: US)
  Receive Date: 20240102
  Receipt Date: 20240102
  Transmission Date: 20240410
  Serious: Yes (Hospitalization, Other)
  Sender: FDA-Public Use
  Company Number: US-EDENBRIDGE PHARMACEUTICALS, LLC-US-2023EDE000105

PATIENT
  Sex: Male

DRUGS (40)
  1. PREDNISOLONE SODIUM PHOSPHATE [Suspect]
     Active Substance: PREDNISOLONE SODIUM PHOSPHATE
     Indication: Hodgkin^s disease
     Dosage: 35 MG, BID INITIALLY IN THE HOSPITAL
     Route: 065
  2. PREDNISOLONE SODIUM PHOSPHATE [Suspect]
     Active Substance: PREDNISOLONE SODIUM PHOSPHATE
     Dosage: 35 MG, BID, AT THE START OF CYCLE 1
     Route: 065
  3. PREDNISOLONE SODIUM PHOSPHATE [Suspect]
     Active Substance: PREDNISOLONE SODIUM PHOSPHATE
     Dosage: 35 MG, BID, AT THE START OF CYCLE 2
     Route: 065
  4. PREDNISOLONE SODIUM PHOSPHATE [Suspect]
     Active Substance: PREDNISOLONE SODIUM PHOSPHATE
     Dosage: 35 MG, BID, AT THE START OF CYCLE 3
     Route: 065
  5. BRENTUXIMAB VEDOTIN [Concomitant]
     Active Substance: BRENTUXIMAB VEDOTIN
     Indication: Hodgkin^s disease
     Dosage: 1.2 MG/KG - FIRST CYCLE (PRE-TREATMENT)
     Route: 065
  6. BRENTUXIMAB VEDOTIN [Concomitant]
     Active Substance: BRENTUXIMAB VEDOTIN
     Dosage: 1.2 MG/KG - SECOND CYCLE (PRE-TREATMENT)
     Route: 065
  7. BRENTUXIMAB VEDOTIN [Concomitant]
     Active Substance: BRENTUXIMAB VEDOTIN
     Dosage: UNK CYCLE 1
     Route: 065
  8. BRENTUXIMAB VEDOTIN [Concomitant]
     Active Substance: BRENTUXIMAB VEDOTIN
     Dosage: UNK CYCLE 2
     Route: 065
  9. BRENTUXIMAB VEDOTIN [Concomitant]
     Active Substance: BRENTUXIMAB VEDOTIN
     Dosage: UNK CYCLE 3
     Route: 065
  10. BRENTUXIMAB VEDOTIN [Concomitant]
     Active Substance: BRENTUXIMAB VEDOTIN
     Dosage: UNK CYCLE 4
     Route: 065
  11. BRENTUXIMAB VEDOTIN [Concomitant]
     Active Substance: BRENTUXIMAB VEDOTIN
     Dosage: UNK CYCLE 5
     Route: 065
  12. CYCLOPHOSPHAMIDE [Concomitant]
     Active Substance: CYCLOPHOSPHAMIDE
     Indication: Hodgkin^s disease
     Dosage: UNK, DAY 5 OF CYCLE 1 (PRE-TREATMENT)
     Route: 065
  13. CYCLOPHOSPHAMIDE [Concomitant]
     Active Substance: CYCLOPHOSPHAMIDE
     Dosage: UNK, DAY 17 OF CYCLE 1 (PRE-TREATMENT)
     Route: 065
  14. CYCLOPHOSPHAMIDE [Concomitant]
     Active Substance: CYCLOPHOSPHAMIDE
     Dosage: UNK, DAY 5 OF CYCLE 2 (PRE-TREATMENT)
     Route: 065
  15. CYCLOPHOSPHAMIDE [Concomitant]
     Active Substance: CYCLOPHOSPHAMIDE
     Dosage: UNK, DAY 17 OF CYCLE 2 (PRE-TREATMENT)
     Route: 065
  16. COLESTIPOL [Concomitant]
     Active Substance: COLESTIPOL
     Indication: Pruritus
     Dosage: UNK
     Route: 065
  17. DIPHENHYDRAMINE [Concomitant]
     Active Substance: DIPHENHYDRAMINE
     Indication: Pruritus
     Dosage: UNK
     Route: 065
  18. URSODIOL [Concomitant]
     Active Substance: URSODIOL
     Indication: Vanishing bile duct syndrome
     Dosage: UNK
     Route: 065
  19. PREDNISONE [Concomitant]
     Active Substance: PREDNISONE
     Indication: Hodgkin^s disease
     Dosage: UNK, CYCLE 1 (PRETREATMENT)
     Route: 065
  20. PREDNISONE [Concomitant]
     Active Substance: PREDNISONE
     Dosage: UNK, CYCLE 2 (PRETREATMENT)
     Route: 065
  21. PREDNISONE [Concomitant]
     Active Substance: PREDNISONE
     Dosage: UNK, CYCLE 1
     Route: 065
  22. PREDNISONE [Concomitant]
     Active Substance: PREDNISONE
     Dosage: UNK, CYCLE 2
     Route: 065
  23. PREDNISONE [Concomitant]
     Active Substance: PREDNISONE
     Dosage: UNK, CYCLE 3
     Route: 065
  24. PREDNISONE [Concomitant]
     Active Substance: PREDNISONE
     Dosage: UNK, CYCLE 4
     Route: 065
  25. PREDNISONE [Concomitant]
     Active Substance: PREDNISONE
     Dosage: UNK, CYCLE 5
     Route: 065
  26. DOXORUBICIN [Concomitant]
     Active Substance: DOXORUBICIN
     Indication: Hodgkin^s disease
     Dosage: UNK CYCLE 1
     Route: 065
  27. DOXORUBICIN [Concomitant]
     Active Substance: DOXORUBICIN
     Dosage: UNK CYCLE 2
     Route: 065
  28. DOXORUBICIN [Concomitant]
     Active Substance: DOXORUBICIN
     Dosage: UNK CYCLE 3
     Route: 065
  29. DOXORUBICIN [Concomitant]
     Active Substance: DOXORUBICIN
     Dosage: UNK CYCLE 4
     Route: 065
  30. DOXORUBICIN [Concomitant]
     Active Substance: DOXORUBICIN
     Dosage: UNK CYCLE 5
     Route: 065
  31. VINCRISTINE [Concomitant]
     Active Substance: VINCRISTINE
     Indication: Hodgkin^s disease
     Dosage: UNK CYCLE 1
     Route: 065
  32. VINCRISTINE [Concomitant]
     Active Substance: VINCRISTINE
     Dosage: UNK CYCLE 2
     Route: 065
  33. VINCRISTINE [Concomitant]
     Active Substance: VINCRISTINE
     Dosage: UNK CYCLE 3
     Route: 065
  34. VINCRISTINE [Concomitant]
     Active Substance: VINCRISTINE
     Dosage: UNK CYCLE 4
     Route: 065
  35. VINCRISTINE [Concomitant]
     Active Substance: VINCRISTINE
     Dosage: UNK CYCLE 5
     Route: 065
  36. ETOPOSIDE [Concomitant]
     Active Substance: ETOPOSIDE
     Indication: Hodgkin^s disease
     Dosage: UNK CYCLE 1
     Route: 065
  37. ETOPOSIDE [Concomitant]
     Active Substance: ETOPOSIDE
     Dosage: UNK CYCLE 2
     Route: 065
  38. ETOPOSIDE [Concomitant]
     Active Substance: ETOPOSIDE
     Dosage: UNK CYCLE 3
     Route: 065
  39. ETOPOSIDE [Concomitant]
     Active Substance: ETOPOSIDE
     Dosage: UNK CYCLE 4
     Route: 065
  40. ETOPOSIDE [Concomitant]
     Active Substance: ETOPOSIDE
     Dosage: UNK CYCLE 5
     Route: 065

REACTIONS (5)
  - Febrile neutropenia [Unknown]
  - Alpha haemolytic streptococcal infection [Unknown]
  - Clostridium difficile colitis [Unknown]
  - Klebsiella infection [Unknown]
  - Pneumonitis [Recovered/Resolved]
